FAERS Safety Report 6257533-5 (Version None)
Quarter: 2009Q3

REPORT INFORMATION
  Report Type: 
  Country: None (occurrence: None)
  Receive Date: 20090706
  Receipt Date: 20090701
  Transmission Date: 20100115
  Serious: Yes (Hospitalization, Other)
  Sender: FDA-Public Use
  Company Number: US-JNJFOC-20090700955

PATIENT
  Sex: Male
  Weight: 65.77 kg

DRUGS (2)
  1. FENTANYL TRANSDERMAL SYSTEM [Suspect]
     Indication: DRUG USE FOR UNKNOWN INDICATION
     Route: 062
  2. DURAGESIC-100 [Suspect]
     Indication: DRUG USE FOR UNKNOWN INDICATION
     Route: 062

REACTIONS (5)
  - COMA [None]
  - DYSPNOEA [None]
  - MEMORY IMPAIRMENT [None]
  - ROAD TRAFFIC ACCIDENT [None]
  - WEIGHT DECREASED [None]
